FAERS Safety Report 5053629-4 (Version None)
Quarter: 2006Q3

REPORT INFORMATION
  Report Type: 
  Country: None (occurrence: None)
  Receive Date: 20060718
  Receipt Date: 20060706
  Transmission Date: 20061208
  Serious: Yes (Hospitalization)
  Sender: FDA-Public Use
  Company Number: CA-AVENTIS-200617057GDDC

PATIENT
  Age: 58 Year
  Sex: Female
  Weight: 54 kg

DRUGS (9)
  1. KETEK [Suspect]
     Indication: BRONCHITIS ACUTE
  2. DIGOXIN [Concomitant]
  3. HYDROCHLOROTHIAZIDE [Concomitant]
  4. FOSINOPRIL SODIUM [Concomitant]
  5. PROGESTERONE [Concomitant]
  6. PAROXETINE HCL [Concomitant]
  7. OMEPRAZOLE [Concomitant]
  8. BUDESONIDE [Concomitant]
     Dosage: DOSE: UNK
     Route: 055
  9. TERBUTALINE [Concomitant]
     Dosage: DOSE: UNK
     Route: 055

REACTIONS (7)
  - CARDIAC ENZYMES INCREASED [None]
  - CARDIOACTIVE DRUG LEVEL INCREASED [None]
  - ELECTROCARDIOGRAM REPOLARISATION ABNORMALITY [None]
  - HYPOMAGNESAEMIA [None]
  - SYNCOPE [None]
  - TACHYARRHYTHMIA [None]
  - THERAPEUTIC AGENT TOXICITY [None]
